FAERS Safety Report 16258707 (Version 1)
Quarter: 2019Q2

REPORT INFORMATION
  Report Type: Spontaneous
  Country: MA (occurrence: MA)
  Receive Date: 20190430
  Receipt Date: 20190430
  Transmission Date: 20190711
  Serious: Yes (Hospitalization)
  Sender: FDA-Public Use
  Company Number: PHHY2018MA066474

PATIENT
  Age: 12 Year
  Sex: Male

DRUGS (2)
  1. TEGRETOL [Suspect]
     Active Substance: CARBAMAZEPINE
     Indication: NEURALGIA
     Dosage: UNK
     Route: 065
  2. AMOXICILLIN. [Interacting]
     Active Substance: AMOXICILLIN
     Indication: INFLUENZA LIKE ILLNESS
     Dosage: UNK
     Route: 065

REACTIONS (10)
  - Conjunctivitis [Recovering/Resolving]
  - Influenza like illness [Recovering/Resolving]
  - Rash erythematous [Recovering/Resolving]
  - Condition aggravated [Recovering/Resolving]
  - General physical condition abnormal [Recovering/Resolving]
  - Toxic epidermal necrolysis [Recovering/Resolving]
  - Dermatitis bullous [Recovering/Resolving]
  - Cheilitis [Recovering/Resolving]
  - Drug interaction [Unknown]
  - Pyrexia [Recovering/Resolving]
